FAERS Safety Report 11537245 (Version 1)
Quarter: 2015Q3

REPORT INFORMATION
  Report Type: Spontaneous
  Country: AT (occurrence: AT)
  Receive Date: 20150922
  Receipt Date: 20150922
  Transmission Date: 20151125
  Serious: Yes (Death, Other)
  Sender: FDA-Public Use
  Company Number: AT-JUBILANT CADISTA PHARMACEUTICALS-2015JUB00279

PATIENT
  Age: 52 Year
  Sex: Female

DRUGS (4)
  1. ANTIHYPERTENSIVE DRUGS [Suspect]
     Active Substance: UNSPECIFIED INGREDIENT
     Indication: HYPERTENSION
  2. FLUPHENAZINE [Suspect]
     Active Substance: FLUPHENAZINE
  3. RISPERIDONE. [Suspect]
     Active Substance: RISPERIDONE
  4. MIRTAZAPINE. [Suspect]
     Active Substance: MIRTAZAPINE

REACTIONS (3)
  - Hypoperfusion [Fatal]
  - Syncope [Unknown]
  - Hypotension [Fatal]
